FAERS Safety Report 17096119 (Version 1)
Quarter: 2019Q4

REPORT INFORMATION
  Report Type: Spontaneous
  Country: DE (occurrence: DE)
  Receive Date: 20191202
  Receipt Date: 20191202
  Transmission Date: 20200122
  Serious: Yes (Other)
  Sender: FDA-Public Use
  Company Number: DE-B.I. PHARMACEUTICALS,INC./RIDGEFIELD-2019-BI-116174

PATIENT
  Age: 38 Year
  Sex: Female

DRUGS (2)
  1. GILOTRIF [Suspect]
     Active Substance: AFATINIB
     Indication: NON-SMALL CELL LUNG CANCER
     Route: 065
  2. GILOTRIF [Suspect]
     Active Substance: AFATINIB
     Route: 065

REACTIONS (6)
  - Haemothorax [Recovering/Resolving]
  - Malignant neoplasm progression [Recovering/Resolving]
  - Diarrhoea [Unknown]
  - Malignant pleural effusion [Recovering/Resolving]
  - Metastases to pleura [Unknown]
  - Rash [Unknown]
